FAERS Safety Report 4350377-0 (Version None)
Quarter: 2004Q2

REPORT INFORMATION
  Report Type: 
  Country: None (occurrence: None)
  Receive Date: 20040430
  Receipt Date: 20040126
  Transmission Date: 20050107
  Serious: No
  Sender: FDA-Public Use
  Company Number: US-BRISTOL-MYERS SQUIBB COMPANY-12492716

PATIENT
  Age: 44 Year
  Sex: Male

DRUGS (4)
  1. LAC-HYDRIN [Suspect]
     Route: 061
  2. ZYRTEC [Concomitant]
  3. NEURONTIN [Concomitant]
  4. ADVAIR DISKUS 100/50 [Concomitant]

REACTIONS (1)
  - DRUG INEFFECTIVE [None]
